FAERS Safety Report 5757916-3 (Version None)
Quarter: 2008Q2

REPORT INFORMATION
  Report Type: 
  Country: None (occurrence: None)
  Receive Date: 20080602
  Receipt Date: 20080602
  Transmission Date: 20081010
  Serious: Yes (Other)
  Sender: FDA-Public Use
  Company Number: None

PATIENT
  Age: 52 Year
  Sex: Female
  Weight: 49.8957 kg

DRUGS (1)
  1. BUDEPRION XL 300 MG TEVA [Suspect]
     Indication: DEPRESSION
     Dosage: ONE TABLET DAILY PO
     Route: 048

REACTIONS (8)
  - ANXIETY [None]
  - CHEST DISCOMFORT [None]
  - CRYING [None]
  - DRUG INEFFECTIVE [None]
  - FEELING OF DESPAIR [None]
  - MALAISE [None]
  - MIGRAINE [None]
  - THERAPEUTIC RESPONSE UNEXPECTED WITH DRUG SUBSTITUTION [None]
